FAERS Safety Report 21578248 (Version 1)
Quarter: 2022Q4

REPORT INFORMATION
  Report Type: Spontaneous
  Country: US (occurrence: None)
  Receive Date: 20221110
  Receipt Date: 20221110
  Transmission Date: 20230113
  Serious: No
  Sender: FDA-Public Use
  Company Number: None

PATIENT
  Age: 71 Year
  Sex: Male
  Weight: 69.75 kg

DRUGS (6)
  1. PAXLOVID [Suspect]
     Active Substance: NIRMATRELVIR\RITONAVIR
     Indication: COVID-19
     Dosage: OTHER STRENGTH : BLANK;?FREQUENCY : TWICE A DAY;?
     Route: 048
     Dates: start: 20221107, end: 20221109
  2. TAMSULOSIN [Concomitant]
     Active Substance: TAMSULOSIN
  3. HYDROXYCHLOROQUINE SULFATE [Concomitant]
     Active Substance: HYDROXYCHLOROQUINE SULFATE
  4. Zn gluconate [Concomitant]
  5. VITAMIN D [Concomitant]
     Active Substance: VITAMIN D NOS
  6. OMEPRAZOLE [Concomitant]
     Active Substance: OMEPRAZOLE

REACTIONS (3)
  - Taste disorder [None]
  - Flatulence [None]
  - Faeces soft [None]

NARRATIVE: CASE EVENT DATE: 20221107
